FAERS Safety Report 25891142 (Version 1)
Quarter: 2025Q4

REPORT INFORMATION
  Report Type: Spontaneous
  Country: JP (occurrence: JP)
  Receive Date: 20251007
  Receipt Date: 20251007
  Transmission Date: 20260118
  Serious: Yes (Other)
  Sender: JOHNSON AND JOHNSON
  Company Number: JP-JNJFOC-20251007843

PATIENT
  Age: 5 Decade
  Sex: Male

DRUGS (1)
  1. EPOPROSTENOL [Suspect]
     Active Substance: EPOPROSTENOL
     Indication: Heritable pulmonary arterial hypertension
     Dosage: DOSE UNKNOWN
     Route: 041

REACTIONS (3)
  - Hyperthyroidism [Unknown]
  - Graves^ disease [Unknown]
  - Silent thyroiditis [Recovering/Resolving]
